FAERS Safety Report 10386652 (Version 1)
Quarter: 2014Q3

REPORT INFORMATION
  Report Type: Spontaneous
  Country: US (occurrence: None)
  Receive Date: 20140814
  Receipt Date: 20140814
  Transmission Date: 20150326
  Serious: Yes (Life-Threatening)
  Sender: FDA-Public Use
  Company Number: None

PATIENT
  Age: 69 Year
  Sex: Male
  Weight: 96.8 kg

DRUGS (1)
  1. FONDAPARINUX [Suspect]
     Active Substance: FONDAPARINUX
     Indication: DEEP VEIN THROMBOSIS
     Dates: start: 20130627, end: 20130726

REACTIONS (1)
  - Haemorrhage intracranial [None]

NARRATIVE: CASE EVENT DATE: 20130726
